FAERS Safety Report 13479025 (Version 7)
Quarter: 2021Q1

REPORT INFORMATION
  Report Type: Spontaneous
  Country: BE (occurrence: BE)
  Receive Date: 20170425
  Receipt Date: 20210309
  Transmission Date: 20210419
  Serious: Yes (Life-Threatening, Hospitalization, Disabling, Other)
  Sender: FDA-Public Use
  Company Number: BE-SA-2017SA072789

PATIENT
  Age: 42 Year
  Sex: Male

DRUGS (19)
  1. PANTOMED [DEXPANTHENOL] [Concomitant]
     Dosage: 40 MG
     Route: 065
  2. NEORAL [Concomitant]
     Active Substance: CYCLOSPORINE
     Dosage: 5 ML/KG, QD
  3. MARCOUMAR [Concomitant]
     Active Substance: PHENPROCOUMON
     Dosage: 3 MG COMPR CONSTRUCTION / DISMANTLING COMPR, ORALLY ALTERNATING 1/2 (EVEN DAYS) AND 3/4 20H
     Route: 048
  4. PANTOMED [DEXPANTHENOL] [Concomitant]
     Dosage: 20 MG, QD
     Route: 065
  5. MAGNETOP [MAGNESIUM OXIDE] [Concomitant]
     Active Substance: MAGNESIUM OXIDE
     Dosage: 450 MG BAG EVERY WED, SAT. BAG, ORAL 08H
     Route: 048
  6. TRAMADOL. [Concomitant]
     Active Substance: TRAMADOL
     Dosage: 100 MG, BID
  7. DAFALGAN [Concomitant]
     Active Substance: ACETAMINOPHEN
     Dosage: 1 G, QID
     Route: 065
  8. LEMTRADA [Suspect]
     Active Substance: ALEMTUZUMAB
     Dosage: UNK UNK,UNK
     Route: 065
     Dates: start: 201505, end: 201505
  9. D?CURE [Concomitant]
     Active Substance: CHOLECALCIFEROL
     Dosage: D?CURE OILY SOLUTION 25,000 IU / 1 ML AMP PER OS. EVERY WO AND SA AMPOULE, ORAL 08H
     Route: 048
  10. FLUOXETINE [Concomitant]
     Active Substance: FLUOXETINE HYDROCHLORIDE
     Dosage: 20 MG, QD
     Route: 048
  11. KEPPRA [Concomitant]
     Active Substance: LEVETIRACETAM
     Dosage: 500 MG, BID
     Route: 048
  12. LIORESAL [Concomitant]
     Active Substance: BACLOFEN
     Dosage: 10 MG, BID
  13. LEMTRADA [Suspect]
     Active Substance: ALEMTUZUMAB
     Dosage: UNK UNK,UNK
     Route: 065
     Dates: start: 2012
  14. PROMAGNOR [Concomitant]
     Active Substance: MAGNESIUM
     Dosage: @XW(WED AND SAT)
  15. LEMTRADA [Suspect]
     Active Substance: ALEMTUZUMAB
     Indication: MULTIPLE SCLEROSIS
     Dosage: UNK UNK,UNK
     Route: 065
     Dates: start: 201604, end: 201604
  16. XARELTO [Suspect]
     Active Substance: RIVAROXABAN
     Indication: CEREBRAL VENOUS SINUS THROMBOSIS
     Route: 065
  17. FAMPYRA [Concomitant]
     Active Substance: DALFAMPRIDINE
     Dosage: 10 MG, BID
  18. STEOVIT D3 [Concomitant]
     Active Substance: CALCIUM CARBONATE\CHOLECALCIFEROL
     Dosage: 1 DF, QD
     Route: 065
  19. FRAXIPARINE [Concomitant]
     Active Substance: NADROPARIN CALCIUM
     Dosage: 0.4 CC

REACTIONS (43)
  - Nodule [Unknown]
  - Haemophagocytic lymphohistiocytosis [Recovered/Resolved]
  - Hyperbilirubinaemia [Unknown]
  - Fall [Unknown]
  - Speech disorder [Unknown]
  - Staphylococcus test positive [Unknown]
  - Malaise [Unknown]
  - Serum ferritin increased [Unknown]
  - Transverse sinus thrombosis [Unknown]
  - Respiratory failure [Unknown]
  - Cholecystitis [Unknown]
  - Autoimmune haemolytic anaemia [Unknown]
  - Ecchymosis [Unknown]
  - Vomiting [Unknown]
  - Abscess limb [Unknown]
  - Chromaturia [Unknown]
  - Rib fracture [Unknown]
  - Evans syndrome [Unknown]
  - Haemolytic anaemia [Recovering/Resolving]
  - Intravascular haemolysis [Unknown]
  - Kaposi^s sarcoma [Unknown]
  - Leukoencephalopathy [Unknown]
  - Jaundice [Unknown]
  - Abdominal discomfort [Unknown]
  - Fatigue [Unknown]
  - International normalised ratio fluctuation [Unknown]
  - Gait disturbance [Unknown]
  - Somnolence [Unknown]
  - Blood triglycerides increased [Unknown]
  - Blood urine present [Unknown]
  - Dysarthria [Unknown]
  - Immune thrombocytopenia [Recovering/Resolving]
  - Superior sagittal sinus thrombosis [Unknown]
  - Thrombocytopenia [Unknown]
  - Abdominal pain upper [Unknown]
  - Off label use [Unknown]
  - Bone marrow disorder [Unknown]
  - Gastrointestinal hypermotility [Unknown]
  - Bacterial test positive [Unknown]
  - Polyneuropathy [Unknown]
  - Lumbar vertebral fracture [Unknown]
  - Haptoglobin decreased [Unknown]
  - Cholelithiasis [Unknown]

NARRATIVE: CASE EVENT DATE: 20170130
